FAERS Safety Report 13978093 (Version 2)
Quarter: 2017Q4

REPORT INFORMATION
  Report Type: Spontaneous
  Country: DZ (occurrence: DZ)
  Receive Date: 20170915
  Receipt Date: 20171204
  Transmission Date: 20180321
  Serious: Yes (Death)
  Sender: FDA-Public Use
  Company Number: DZ-JNJFOC-20170910163

PATIENT
  Age: 69 Year
  Sex: Male
  Weight: 68 kg

DRUGS (1)
  1. ZYTIGA [Suspect]
     Active Substance: ABIRATERONE ACETATE
     Indication: PRODUCT USED FOR UNKNOWN INDICATION
     Route: 048
     Dates: start: 20170720, end: 20170725

REACTIONS (2)
  - Renal failure [Fatal]
  - Hyponatraemia [Fatal]

NARRATIVE: CASE EVENT DATE: 20170725
